FAERS Safety Report 18436713 (Version 1)
Quarter: 2020Q4

REPORT INFORMATION
  Report Type: Report from Study
  Country: US (occurrence: US)
  Receive Date: 20201028
  Receipt Date: 20201028
  Transmission Date: 20210114
  Serious: Yes (Other)
  Sender: FDA-Public Use
  Company Number: US-SHIRE-US202012013

PATIENT
  Sex: Female

DRUGS (1)
  1. HUMAN IMMUNOGLOBULIN; HYALURONIDASE [Suspect]
     Active Substance: HUMAN IMMUNOGLOBULIN G\HYALURONIDASE RECOMBINANT HUMAN
     Indication: IMMUNODEFICIENCY COMMON VARIABLE
     Route: 065

REACTIONS (24)
  - Nephrolithiasis [Unknown]
  - Eye pruritus [Unknown]
  - Infection [Unknown]
  - Urinary tract infection [Unknown]
  - Fatigue [Unknown]
  - Systemic lupus erythematosus [Unknown]
  - Dyspepsia [Unknown]
  - Condition aggravated [Unknown]
  - Arthralgia [Unknown]
  - Infusion site erythema [Unknown]
  - Inability to afford medication [Unknown]
  - Ill-defined disorder [Unknown]
  - Pain [Unknown]
  - Pruritus [Unknown]
  - Sinus disorder [Unknown]
  - Infusion site pruritus [Unknown]
  - Asthenia [Unknown]
  - Swelling [Unknown]
  - Joint swelling [Unknown]
  - Infusion site vesicles [Recovered/Resolved]
  - Sinusitis [Unknown]
  - Vasculitis [Unknown]
  - Oesophageal discomfort [Unknown]
  - Abdominal pain [Unknown]
